FAERS Safety Report 13334053 (Version 1)
Quarter: 2017Q1

REPORT INFORMATION
  Report Type: Spontaneous
  Country: DE (occurrence: DE)
  Receive Date: 20170313
  Receipt Date: 20170313
  Transmission Date: 20170428
  Serious: Yes (Other)
  Sender: FDA-Public Use
  Company Number: GXKR2017DE001557

PATIENT

DRUGS (4)
  1. QUETIAPINE. [Suspect]
     Active Substance: QUETIAPINE
     Indication: DEPRESSION
     Dosage: MATERNAL DOSE (0.-40.4 GESTATIONAL WEEK): 300 [MG/D ]
     Route: 064
     Dates: start: 20160322, end: 20161231
  2. AMOXICILLIN. [Concomitant]
     Active Substance: AMOXICILLIN
     Indication: STREPTOCOCCUS TEST POSITIVE
     Dosage: (40.4-40.4 GESTATIONAL WEEK)
     Route: 064
     Dates: start: 20161231, end: 20161231
  3. L-THYROXINE [Concomitant]
     Active Substance: LEVOTHYROXINE
     Indication: HYPOTHYROIDISM
     Dosage: MATERNAL DOSE (0.-40.4 GESTATIONAL WEEK): 125 [?G/D ]
     Route: 064
     Dates: start: 20160322, end: 20161231
  4. VENLAFAXINE [Suspect]
     Active Substance: VENLAFAXINE HYDROCHLORIDE
     Indication: DEPRESSION
     Dosage: MATERNAL DOSE (0.-40.4 GESTATIONAL WEEK): 150 [MG/D ]
     Route: 064
     Dates: start: 20160322, end: 20161231

REACTIONS (2)
  - Infantile apnoea [Recovered/Resolved]
  - Cyanosis neonatal [Recovered/Resolved]

NARRATIVE: CASE EVENT DATE: 20161231
